FAERS Safety Report 24900024 (Version 1)
Quarter: 2025Q1

REPORT INFORMATION
  Report Type: Spontaneous
  Country: US (occurrence: US)
  Receive Date: 20250129
  Receipt Date: 20250129
  Transmission Date: 20250409
  Serious: No
  Sender: LEO PHARM
  Company Number: US-LEO Pharma-377196

PATIENT
  Age: 82 Year
  Sex: Female

DRUGS (1)
  1. ADBRY [Suspect]
     Active Substance: TRALOKINUMAB-LDRM
     Indication: Dermatitis atopic
     Dates: start: 202412

REACTIONS (5)
  - Systemic lupus erythematosus [Unknown]
  - Asthenia [Unknown]
  - Arthralgia [Unknown]
  - Dyspnoea [Unknown]
  - Eczema [Unknown]
